FAERS Safety Report 10745268 (Version 1)
Quarter: 2015Q1

REPORT INFORMATION
  Report Type: Spontaneous
  Country: US (occurrence: None)
  Receive Date: 20150126
  Receipt Date: 20150126
  Transmission Date: 20150721
  Serious: No
  Sender: FDA-Public Use
  Company Number: None

PATIENT
  Age: 36 Year
  Sex: Male
  Weight: 68.49 kg

DRUGS (5)
  1. DIAZEPAM. [Concomitant]
     Active Substance: DIAZEPAM
  2. MVI [Concomitant]
     Active Substance: VITAMINS
  3. DOCUSATE [Concomitant]
     Active Substance: DOCUSATE
  4. PEGYLATED INTERFERON ALPHA NOS [Concomitant]
     Active Substance: PEGINTERFERON ALFA-2A OR PEGINTERFERON ALFA-2B
  5. OXYCODONE [Suspect]
     Active Substance: OXYCODONE
     Indication: CANCER PAIN
     Route: 048
     Dates: start: 20150112, end: 20150123

REACTIONS (2)
  - Drug ineffective [None]
  - Product physical consistency issue [None]

NARRATIVE: CASE EVENT DATE: 20150112
